FAERS Safety Report 4666132-8 (Version None)
Quarter: 2005Q2

REPORT INFORMATION
  Report Type: 
  Country: None (occurrence: None)
  Receive Date: 20050519
  Receipt Date: 20050510
  Transmission Date: 20051028
  Serious: Yes (Other)
  Sender: FDA-Public Use
  Company Number: FR-BRISTOL-MYERS SQUIBB COMPANY-12964169

PATIENT
  Age: 70 Year
  Sex: Male

DRUGS (2)
  1. TAXOL [Suspect]
     Indication: LUNG NEOPLASM MALIGNANT
     Route: 042
  2. FLUOROURACIL [Concomitant]
     Indication: LUNG NEOPLASM MALIGNANT

REACTIONS (2)
  - RETINAL OEDEMA [None]
  - VISUAL ACUITY REDUCED [None]
